FAERS Safety Report 7459328-3 (Version None)
Quarter: 2011Q2

REPORT INFORMATION
  Report Type: 
  Country: None (occurrence: None)
  Receive Date: 20110505
  Receipt Date: 20110502
  Transmission Date: 20111010
  Serious: Yes (Other)
  Sender: FDA-Public Use
  Company Number: US-PFIZER INC-2011014279

PATIENT
  Sex: Male

DRUGS (22)
  1. TRAZODONE [Concomitant]
  2. LEXAPRO [Concomitant]
     Indication: DEPRESSION
     Dosage: UNK
     Dates: start: 20030501
  3. CHANTIX [Suspect]
     Indication: SMOKING CESSATION THERAPY
     Dosage: STARTER PACK AND CONTINIUNG PACKS
     Dates: start: 20070301, end: 20070701
  4. LEXAPRO [Concomitant]
  5. PENICILLIN VK [Concomitant]
     Indication: ANTIBIOTIC THERAPY
     Dosage: UNK
     Dates: start: 20070201, end: 20091001
  6. FLUTICASONE [Concomitant]
     Indication: RHINITIS
     Dosage: UNK
     Dates: start: 20041001, end: 20100101
  7. AZITHROMYCIN [Concomitant]
     Indication: ANTIBIOTIC THERAPY
     Dosage: UNK
     Dates: start: 20051101, end: 20091001
  8. CHANTIX [Suspect]
     Dosage: STARTER PACK AND CONTINIUNG PACKS
     Dates: start: 20071101, end: 20080101
  9. PANTOPRAZOLE [Concomitant]
     Indication: GASTROOESOPHAGEAL REFLUX DISEASE
     Dosage: UNK
     Dates: start: 20040301, end: 20090801
  10. LEXAPRO [Concomitant]
  11. ZETIA [Concomitant]
     Indication: BLOOD CHOLESTEROL INCREASED
     Dosage: UNK
     Dates: start: 20041201, end: 20091201
  12. LEVITRA [Concomitant]
     Indication: ERECTILE DYSFUNCTION
     Dosage: UNK
     Dates: start: 20060501, end: 20080201
  13. TRAZODONE [Concomitant]
     Indication: DEPRESSION
     Dosage: UNK
     Dates: start: 20030301
  14. ACETAMINOPHEN AND HYDROCODONE BITARTRATE [Concomitant]
     Indication: PAIN
     Dosage: UNK
     Dates: start: 20030301, end: 20071201
  15. CRESTOR [Concomitant]
     Indication: BLOOD CHOLESTEROL INCREASED
     Dosage: UNK
     Dates: start: 20041201
  16. DOXYCYCLINE [Concomitant]
     Indication: ANTIBIOTIC THERAPY
     Dosage: UNK
     Dates: start: 20050801, end: 20090301
  17. LORAZEPAM [Concomitant]
     Indication: ANXIETY
     Dosage: UNK
     Dates: start: 20070101, end: 20100401
  18. LEXAPRO [Concomitant]
     Indication: ANXIETY
  19. NITROGLYCERIN [Concomitant]
     Indication: ANGINA PECTORIS
     Dosage: UNK
     Dates: start: 20041101, end: 20090801
  20. LORAZEPAM [Concomitant]
  21. CIPROFLOXACIN [Concomitant]
     Indication: ANTIBIOTIC THERAPY
     Dosage: UNK
     Dates: start: 20050401, end: 20091101
  22. OMEPRAZOLE [Concomitant]
     Indication: GASTROOESOPHAGEAL REFLUX DISEASE
     Dosage: UNK
     Dates: start: 20060901, end: 20070501

REACTIONS (7)
  - NIGHTMARE [None]
  - SUICIDAL IDEATION [None]
  - DEPRESSION [None]
  - HEADACHE [None]
  - IRRITABILITY [None]
  - ANXIETY [None]
  - MOOD SWINGS [None]
